FAERS Safety Report 20861514 (Version 1)
Quarter: 2022Q2

REPORT INFORMATION
  Report Type: Spontaneous
  Country: US (occurrence: US)
  Receive Date: 20220523
  Receipt Date: 20220523
  Transmission Date: 20220721
  Serious: Yes (Other)
  Sender: FDA-Public Use
  Company Number: US-MYLANLABS-2022M1036993

PATIENT
  Age: 69 Year
  Sex: Female
  Weight: 47.63 kg

DRUGS (1)
  1. VALSARTAN [Suspect]
     Active Substance: VALSARTAN
     Indication: Blood pressure abnormal
     Dosage: 80 MILLIGRAM, QD
     Route: 048
     Dates: start: 2020

REACTIONS (2)
  - Plasma cell myeloma [Unknown]
  - Intestinal ulcer [Unknown]

NARRATIVE: CASE EVENT DATE: 20220301
